FAERS Safety Report 16430015 (Version 1)
Quarter: 2019Q2

REPORT INFORMATION
  Report Type: Spontaneous
  Country: AR (occurrence: AR)
  Receive Date: 20190614
  Receipt Date: 20190614
  Transmission Date: 20190711
  Serious: Yes (Hospitalization)
  Sender: FDA-Public Use
  Company Number: AR-PFIZER INC-2019249031

PATIENT
  Age: 4 Year
  Sex: Female

DRUGS (1)
  1. IBUPIRAC [Suspect]
     Active Substance: IBUPROFEN
     Indication: PYREXIA
     Dosage: 4 ML, EVERY 4 HRS

REACTIONS (2)
  - Drug ineffective [Unknown]
  - Pneumonia [Recovered/Resolved]
